FAERS Safety Report 21134429 (Version 1)
Quarter: 2022Q3

REPORT INFORMATION
  Report Type: Report from Study
  Country: NL (occurrence: NL)
  Receive Date: 20220726
  Receipt Date: 20220726
  Transmission Date: 20221027
  Serious: Yes (Hospitalization)
  Sender: FDA-Public Use
  Company Number: NL-AstraZeneca-2022A264121

PATIENT
  Age: 0 Year
  Sex: Male
  Weight: 4.6 kg

DRUGS (1)
  1. SYNAGIS [Suspect]
     Active Substance: PALIVIZUMAB
     Indication: Premature baby
     Route: 030
     Dates: start: 20220623

REACTIONS (1)
  - Hypopnoea [Recovered/Resolved]

NARRATIVE: CASE EVENT DATE: 20220623
